FAERS Safety Report 24034958 (Version 2)
Quarter: 2024Q3

REPORT INFORMATION
  Report Type: Spontaneous
  Country: KZ (occurrence: KZ)
  Receive Date: 20240701
  Receipt Date: 20240713
  Transmission Date: 20241017
  Serious: Yes (Other)
  Sender: JOHNSON AND JOHNSON
  Company Number: KZ-JNJFOC-20240658017

PATIENT
  Age: 33 Year
  Sex: Male

DRUGS (45)
  1. COBICISTAT\DARUNAVIR ETHANOLATE [Suspect]
     Active Substance: COBICISTAT\DARUNAVIR ETHANOLATE
     Indication: HIV infection
     Route: 048
  2. EMTRICITABINE [Suspect]
     Active Substance: EMTRICITABINE
     Indication: HIV infection
     Route: 065
  3. SULFAMETHOXAZOLE\TRIMETHOPRIM [Concomitant]
     Active Substance: SULFAMETHOXAZOLE\TRIMETHOPRIM
     Route: 065
     Dates: start: 20240609
  4. FLUOROURACIL\LEUCOVORIN CALCIUM\OXALIPLATIN [Concomitant]
     Active Substance: FLUOROURACIL\LEUCOVORIN CALCIUM\OXALIPLATIN
     Dosage: OXALIPLATIN  160 MG, I.V DRIP INFUSION, ON DAY 1; FLUOROURACIL  700 MG, I.V. BOLUS, ON DAY 1 AND 2
     Route: 065
     Dates: start: 20230601, end: 20230602
  5. FLUOROURACIL\LEUCOVORIN CALCIUM\OXALIPLATIN [Concomitant]
     Active Substance: FLUOROURACIL\LEUCOVORIN CALCIUM\OXALIPLATIN
     Dosage: OXALIPLATIN  160 MG, I.V DRIP INFUSION, ON DAY 1; FLUOROURACIL  700 MG, I.V. BOLUS, ON DAY 1 AND 2
     Route: 065
     Dates: start: 20230615, end: 20230616
  6. FLUOROURACIL\LEUCOVORIN CALCIUM\OXALIPLATIN [Concomitant]
     Active Substance: FLUOROURACIL\LEUCOVORIN CALCIUM\OXALIPLATIN
     Dosage: OXALIPLATIN  160 MG, I.V DRIP INFUSION, ON DAY 1; FLUOROURACIL  700 MG, I.V. BOLUS, ON DAY 1 AND 2
     Route: 065
     Dates: start: 20230629, end: 20230630
  7. FLUOROURACIL\LEUCOVORIN CALCIUM\OXALIPLATIN [Concomitant]
     Active Substance: FLUOROURACIL\LEUCOVORIN CALCIUM\OXALIPLATIN
     Dosage: OXALIPLATIN  160 MG, I.V DRIP INFUSION, ON DAY 1; FLUOROURACIL  700 MG, I.V. BOLUS, ON DAY 1 AND 2
     Route: 065
     Dates: start: 20230713, end: 20230717
  8. FLUOROURACIL\LEUCOVORIN CALCIUM\OXALIPLATIN [Concomitant]
     Active Substance: FLUOROURACIL\LEUCOVORIN CALCIUM\OXALIPLATIN
     Dosage: OXALIPLATIN  160 MG, I.V DRIP INFUSION, ON DAY 1; FLUOROURACIL  700 MG, I.V. BOLUS, ON DAY 1 AND 2
     Route: 065
     Dates: start: 20230825, end: 20230826
  9. DEXAMETHASONE [Concomitant]
     Active Substance: DEXAMETHASONE
  10. ONDANSETRON HYDROCHLORIDE [Concomitant]
     Active Substance: ONDANSETRON HYDROCHLORIDE
  11. CEFTRIAXONE [Concomitant]
     Active Substance: CEFTRIAXONE\CEFTRIAXONE SODIUM
     Dosage: POWDER FOR SOLUTION FOR INFUSION OR INJECTION, 1 G, INTRAVENOUSLY (DRIP INFUSION). (TWICE A DAY, FOR
     Route: 065
  12. CEFTRIAXONE [Concomitant]
     Active Substance: CEFTRIAXONE\CEFTRIAXONE SODIUM
     Dosage: POWDER FOR SOLUTION FOR INFUSION OR INJECTION, 1 G, INTRAVENOUSLY (DRIP INFUSION). (ONCE A DAY, FOR
     Route: 065
  13. CEFTRIAXONE [Concomitant]
     Active Substance: CEFTRIAXONE\CEFTRIAXONE SODIUM
     Route: 042
  14. SODIUM CHLORIDE [Concomitant]
     Active Substance: SODIUM CHLORIDE
     Dosage: 0.9% SODIUM CHLORIDE SOLUTION FOR INFUSION (0.9% SOLUTION FOR INFUSION, 200 ML) (200 ML, INTRAVENOUS
     Route: 041
  15. SODIUM CHLORIDE [Concomitant]
     Active Substance: SODIUM CHLORIDE
     Dosage: 0.9% SODIUM CHLORIDE SOLUTION FOR INFUSION (0.9% SOLUTION FOR INFUSION, 200 ML) (200 ML, INTRAVENOUS
     Route: 041
  16. SODIUM CHLORIDE [Concomitant]
     Active Substance: SODIUM CHLORIDE
     Dosage: 0.9% SOLUTION FOR INFUSION, 400 ML) (400 ML, INTRAVENOUSLY (DRIP INFUSION)) (ONCE A DAY, FOR 6 DAYS)
     Route: 041
  17. SODIUM CHLORIDE [Concomitant]
     Active Substance: SODIUM CHLORIDE
     Dosage: (0.9% SOLUTION FOR INFUSION, 400 ML) (400 ML, INTRAVENOUSLY (DRIP INFUSION)) (ONCE A DAY, FOR 7 DAYS
     Route: 041
  18. SODIUM CHLORIDE [Concomitant]
     Active Substance: SODIUM CHLORIDE
     Dosage: (0.9% SOLUTION FOR INFUSION, 200 ML) (10 ML, INTRAVENOUSLY (MICROSTREAM INFUSION)) (ONCE A DAY, FOR
     Route: 041
  19. SODIUM CHLORIDE [Concomitant]
     Active Substance: SODIUM CHLORIDE
     Dosage: (0.9% SOLUTION FOR INFUSION, 200 ML) (10 ML, INTRAVENOUSLY) (TWICE A DAY, FOR 1 DAY)
     Route: 041
  20. DEXTROSE [Concomitant]
     Active Substance: DEXTROSE\DEXTROSE MONOHYDRATE
     Dosage: FOR 6 DAYS
     Route: 041
  21. ASCORBIC ACID [Concomitant]
     Active Substance: ASCORBIC ACID
     Dosage: (50 MG/ML SOLUTION FOR INFUSION OR INJECTION, 2 ML) (10 ML, INTRAVENOUSLY (DRIP INFUSION)) (ONCE A
     Route: 041
  22. KETROSAN [Concomitant]
     Dosage: (30 MG/ML SOLUTION FOR INJECTION, 1 ML) (1 ML, INTRAMUSCULARLY) TWICE A DAY, FOR 7 DAYS
     Route: 030
  23. KETROSAN [Concomitant]
     Dosage: (30 MG/ML SOLUTION FOR INJECTION, 1 ML) (1 ML, INTRAMUSCULARLY) ONCE A DAY, FOR 1 DAY
     Route: 030
  24. METOCLOPRAMIDE HYDROCHLORIDE [Concomitant]
     Active Substance: METOCLOPRAMIDE HYDROCHLORIDE
     Dosage: (10 MG/2 ML SOLUTION FOR INJECTION) (2 ML, INTRAMUSCULARLY) (THREE TIMES A DAY, FOR 2 DAYS)
     Route: 030
  25. METOCLOPRAMIDE HYDROCHLORIDE [Concomitant]
     Active Substance: METOCLOPRAMIDE HYDROCHLORIDE
     Dosage: (10 MG/2 ML SOLUTION FOR INJECTION) (2 ML, INTRAMUSCULARLY) (TWICE A DAY, FOR 1 DAY)
     Route: 030
  26. METOCLOPRAMIDE HYDROCHLORIDE [Concomitant]
     Active Substance: METOCLOPRAMIDE HYDROCHLORIDE
     Dosage: (10 MG/2 ML SOLUTION FOR INJECTION) (2 ML, INTRAMUSCULARLY) (ONCE A DAY, FOR 1 DAY)
     Route: 030
  27. FAMOTIDINE [Concomitant]
     Active Substance: FAMOTIDINE
     Dosage: (20 MG, LYOPHILIZED POWDER FOR SOLUTION FOR INJECTION WITH SOLVENT) (40 MG, INTRAVENOUSLY (DRIP INFU
     Route: 041
  28. TRAMADOL [Concomitant]
     Active Substance: TRAMADOL\TRAMADOL HYDROCHLORIDE
     Dosage: 50 MG/ML SOLUTION FOR INJECTION, 2 ML) (2 ML, INTRAVENOUSLY (DRIP INFUSION)) (ONCE A DAY, FOR 5 DAYS
     Route: 041
  29. TRAMADOL [Concomitant]
     Active Substance: TRAMADOL\TRAMADOL HYDROCHLORIDE
     Dosage: (50 MG/ML SOLUTION FOR INJECTION, 2 ML) (100 MG, INTRAMUSCULARLY) (TWICE A DAY, FOR 1 DAY)
     Route: 030
  30. NOVOCAINE [PROCAINE HYDROCHLORIDE] [Concomitant]
     Dosage: 0.5% (5 MG/ML) SOLUTION FOR INJECTION, 2 ML) (50 ML, INTRAVENOUSLY (DRIP INFUSION)) (ONCE A DAY, FOR
     Route: 041
  31. METRID [METRONIDAZOLE] [Concomitant]
     Dosage: (0.5% SOLUTION FOR INFUSION, 100 ML) (100 ML, INTRAVENOUSLY (DRIP INFUSION)) (TWICE A DAY, FOR 7 DAY
     Route: 041
  32. METRID [METRONIDAZOLE] [Concomitant]
     Dosage: (0.5% SOLUTION FOR INFUSION, 100 ML) (100 ML, INTRAVENOUSLY (DRIP INFUSION)) (ONCE A DAY, FOR 1 DAY)
     Route: 041
  33. METRID [METRONIDAZOLE] [Concomitant]
     Dosage: (0.5% SOLUTION FOR INFUSION, 100 ML) (100 ML, INTRAVENOUSLY (DRIP INFUSION)) TWICE A DAY, FOR 1 DAY
     Route: 041
  34. FLUCONAZOLE [Concomitant]
     Active Substance: FLUCONAZOLE
     Dosage: FOR 1 DAY
     Route: 048
  35. DROTAVERINE [Concomitant]
     Active Substance: DROTAVERINE
     Dosage: (20 MG/ML SOLUTION FOR INJECTION, 2 ML) (400 ML, INTRAVENOUSLY (DRIP INFUSION))
     Route: 041
  36. OMEZ INSTA [Concomitant]
     Dosage: (20 MG, POWDER FOR ORAL SUSPENSION) (40 MG, INTRAVENOUSLY (MICROSTREAM INFUSION)
     Route: 065
  37. RINGERS SOLUTION [Concomitant]
     Active Substance: CALCIUM CHLORIDE\POTASSIUM CHLORIDE\SODIUM CHLORIDE
     Dosage: (400 ML, SOLUTION FOR INFUSION) (400 ML, INTRAVENOUSLY (DRIP INFUSION)) (THREE TIMES A DAY, FOR 1 DA
     Route: 041
  38. ACESOL [Concomitant]
     Dosage: (400 ML, SOLUTION FOR INFUSION) (400 ML, INTRAVENOUSLY (DRIP INFUSION)) (THREE TIMES A DAY, FOR 1 DA
     Route: 041
  39. CATENOX [Concomitant]
     Dosage: (4,000 ANTI-HA IU (40 MG)/0.4 ML, SOLUTION FOR INJECTION) (0.4 ML, SUBCUTANEOUSLY) (ONCE A DAY, FOR
     Route: 058
  40. ACTRAPID [Concomitant]
     Active Substance: INSULIN HUMAN
     Dosage: (100 IU/ML, 10 ML (1,000 IU), SOLUTION FOR INJECTION) (6 IU, INTRAVENOUSLY (DRIP INFUSION)
     Route: 041
  41. POTASSIUM CHLORIDE [Concomitant]
     Active Substance: POTASSIUM CHLORIDE
     Dosage: (40 MG/ML, 10 ML, CONCENTRATE FOR SOLUTION FOR INFUSION) (40 ML, INTRAVENOUSLY (DRIP INFUSION)) (TWI
     Route: 041
  42. DISOL [BROMHEXINE HYDROCHLORIDE] [Concomitant]
     Dosage: (400 ML, SOLUTION FOR INFUSION) (400 ML, INTRAVENOUSLY (DRIP INFUSION)) (ONCE A DAY, FOR 1 DAY)
     Route: 041
  43. PROMEDOL [TRIMEPERIDINE] [Concomitant]
     Dosage: (20 MG/ML SOLUTION FOR INJECTION, 1 ML) (1 ML, INTRAMUSCULARLY) (ONCE A DAY, FOR 1 DAY)
     Route: 030
  44. PROMEDOL [TRIMEPERIDINE] [Concomitant]
     Dosage: (2% (20 MG/ML) SOLUTION FOR INJECTION, 1 ML) (1 ML, INTRAMUSCULARLY) (ONCE A DAY, FOR 1 DAY)
     Route: 030
  45. PANTIN [PANTOPRAZOLE SODIUM SESQUIHYDRATE] [Concomitant]
     Dosage: (40 MG, LYOPHILIZATE FOR SOLUTION FOR INJECTION) (40 MG, INTRAVENOUSLY) (ONCE A DAY, FOR 1 DAY)
     Route: 042

REACTIONS (3)
  - Blood HIV RNA increased [Not Recovered/Not Resolved]
  - Functional gastrointestinal disorder [Not Recovered/Not Resolved]
  - Decreased immune responsiveness [Not Recovered/Not Resolved]
